FAERS Safety Report 15304087 (Version 4)
Quarter: 2018Q4

REPORT INFORMATION
  Report Type: Report from Study
  Country: US (occurrence: US)
  Receive Date: 20180821
  Receipt Date: 20181230
  Transmission Date: 20190204
  Serious: Yes (Other)
  Sender: FDA-Public Use
  Company Number: US-AMGEN INC.-USASL2018105363

PATIENT
  Age: 42 Year
  Sex: Female

DRUGS (4)
  1. AIMOVIG [Suspect]
     Active Substance: ERENUMAB-AOOE
     Dosage: 140 MG, QMO
     Route: 065
  2. NARATRIPTAN [Concomitant]
     Active Substance: NARATRIPTAN HYDROCHLORIDE
     Dosage: UNK UNK, AS NECESSARY
  3. BOTOX [Concomitant]
     Active Substance: ONABOTULINUMTOXINA
     Dosage: UNK, UNK, USUALLY GETS EVERY 3 MONTHS
  4. AIMOVIG [Suspect]
     Active Substance: ERENUMAB-AOOE
     Indication: MIGRAINE PROPHYLAXIS
     Dosage: 140 MG, QMO
     Route: 065
     Dates: start: 20180721

REACTIONS (14)
  - Lack of injection site rotation [Unknown]
  - Fibromyalgia [Unknown]
  - Sciatica [Not Recovered/Not Resolved]
  - Dry eye [Unknown]
  - Constipation [Unknown]
  - Wrong technique in product usage process [Unknown]
  - Abnormal dreams [Unknown]
  - Insomnia [Recovering/Resolving]
  - Headache [Recovering/Resolving]
  - Injection site haemorrhage [Unknown]
  - Dry mouth [Unknown]
  - Adverse event [Unknown]
  - Fatigue [Recovering/Resolving]
  - Mass [Unknown]

NARRATIVE: CASE EVENT DATE: 2018
